FAERS Safety Report 12922670 (Version 1)
Quarter: 2016Q4

REPORT INFORMATION
  Report Type: Spontaneous
  Country: US (occurrence: US)
  Receive Date: 20161108
  Receipt Date: 20161108
  Transmission Date: 20170207
  Serious: Yes (Other)
  Sender: FDA-Public Use
  Company Number: None

PATIENT
  Age: 40 Year
  Sex: Male
  Weight: 97.65 kg

DRUGS (2)
  1. TESTOSTERONE PELLET [Suspect]
     Active Substance: TESTOSTERONE
     Indication: TESTICULAR FAILURE
     Dosage: ?          OTHER FREQUENCY:EVERY 5 TO 6 MONTH;?
     Route: 058
     Dates: start: 20160801
  2. TESTOSTERONE PELLET [Suspect]
     Active Substance: TESTOSTERONE
     Indication: LIBIDO DECREASED
     Dosage: ?          OTHER FREQUENCY:EVERY 5 TO 6 MONTH;?
     Route: 058
     Dates: start: 20160801

REACTIONS (2)
  - Device expulsion [None]
  - Product solubility abnormal [None]

NARRATIVE: CASE EVENT DATE: 20160822
